FAERS Safety Report 4428734-3 (Version None)
Quarter: 2004Q3

REPORT INFORMATION
  Report Type: 
  Country: None (occurrence: None)
  Receive Date: 20040818
  Receipt Date: 20040311
  Transmission Date: 20050211
  Serious: No
  Sender: FDA-Public Use
  Company Number: US-BRISTOL-MYERS SQUIBB COMPANY-12531372

PATIENT
  Sex: Female

DRUGS (1)
  1. TEQUIN [Suspect]
     Route: 048

REACTIONS (4)
  - ANXIETY [None]
  - HEART RATE INCREASED [None]
  - INSOMNIA [None]
  - NERVOUSNESS [None]
